FAERS Safety Report 4472085-8 (Version None)
Quarter: 2004Q4

REPORT INFORMATION
  Report Type: 
  Country: None (occurrence: None)
  Receive Date: 20041008
  Receipt Date: 20040927
  Transmission Date: 20050328
  Serious: Yes (Death, Other)
  Sender: FDA-Public Use
  Company Number: 2004070325

PATIENT
  Age: 29 Year
  Sex: 0

DRUGS (3)
  1. AMLODIPINE [Suspect]
     Indication: ILL-DEFINED DISORDER
     Dates: end: 20030101
  2. LORAZEPAM [Suspect]
     Indication: ILL-DEFINED DISORDER
     Dates: end: 20030101
  3. CLONIDINE [Suspect]
     Indication: ILL-DEFINED DISORDER
     Dates: end: 20030101

REACTIONS (3)
  - CARDIO-RESPIRATORY ARREST [None]
  - COMPLETED SUICIDE [None]
  - INTENTIONAL OVERDOSE [None]
